FAERS Safety Report 6582290-2 (Version None)
Quarter: 2010Q1

REPORT INFORMATION
  Report Type: 
  Country: None (occurrence: None)
  Receive Date: 20100216
  Receipt Date: 20100210
  Transmission Date: 20100710
  Serious: Yes (Other)
  Sender: FDA-Public Use
  Company Number: AU-WYE-G05487410

PATIENT
  Age: 52 Year
  Sex: Male

DRUGS (1)
  1. RAPAMUNE [Suspect]
     Dosage: HAD BEEN ON RAPAMUNE FOR 3 YEARS

REACTIONS (4)
  - CHRONIC ALLOGRAFT NEPHROPATHY [None]
  - OEDEMA PERIPHERAL [None]
  - PROTEINURIA [None]
  - THERAPEUTIC RESPONSE UNEXPECTED [None]
